FAERS Safety Report 13094410 (Version 6)
Quarter: 2021Q4

REPORT INFORMATION
  Report Type: Spontaneous
  Country: US (occurrence: US)
  Receive Date: 20170106
  Receipt Date: 20211215
  Transmission Date: 20220303
  Serious: No
  Sender: FDA-Public Use
  Company Number: US-PFIZER INC-2017006361

PATIENT
  Age: 57 Year
  Sex: Female

DRUGS (14)
  1. LYRICA [Suspect]
     Active Substance: PREGABALIN
     Indication: Trigeminal neuralgia
     Dosage: 1 DF, 1X/DAY IN THE MORNING
     Route: 048
     Dates: start: 201610
  2. LYRICA [Suspect]
     Active Substance: PREGABALIN
     Indication: Pain
     Dosage: 1 DF, 2X/DAY (ONE CAPSULE IN THE MORNING AND ONE CAPSULES AT NIGHT)
  3. LYRICA [Suspect]
     Active Substance: PREGABALIN
     Indication: Neuralgia
     Dosage: 3 DF, DAILY (ONE CAPSULE IN THE MORNING AND TWO CAPSULES IN THE EVENING)
  4. LYRICA [Suspect]
     Active Substance: PREGABALIN
     Dosage: 2 DF, 2X/DAY (TWO CAPSULES IN THE MORNING, AND TWO CAPSULES IN THE EVENING)
  5. LYRICA [Suspect]
     Active Substance: PREGABALIN
     Dosage: 3 DF, DAILY (ONE CAPSULE IN THE MORNING AND TWO CAPSULES IN THE EVENING)
     Dates: end: 201611
  6. LYRICA [Suspect]
     Active Substance: PREGABALIN
     Dosage: 150 MG, DAILY (50 MG AM, 100 MG PM)
     Dates: start: 20170113
  7. LYRICA [Suspect]
     Active Substance: PREGABALIN
     Dosage: 150 MG, DAILY (1 CAPSULE IN AM,2 CAPS IN PM FOR 90 DAYS]
     Route: 048
  8. LYRICA [Suspect]
     Active Substance: PREGABALIN
     Dosage: 100 MG
  9. IBUPROFEN [Concomitant]
     Active Substance: IBUPROFEN
     Indication: Pain
     Dosage: 400-800 MG, AS NEEDED
  10. IBUPROFEN [Concomitant]
     Active Substance: IBUPROFEN
     Dosage: 800 MG, UNK
  11. VITAMIN D NOS [Concomitant]
     Active Substance: VITAMIN D NOS
     Dosage: 1000 IU, UNK
  12. ASPIRIN [Concomitant]
     Active Substance: ASPIRIN
     Dosage: 81 MG, UNK
  13. CRESTOR [Concomitant]
     Active Substance: ROSUVASTATIN CALCIUM
     Dosage: 10 MG, UNK
  14. CLOTRIMAZOLE [Concomitant]
     Active Substance: CLOTRIMAZOLE
     Dosage: 1 %, UNK

REACTIONS (1)
  - Drug ineffective [Unknown]
